FAERS Safety Report 5139272-7 (Version None)
Quarter: 2006Q4

REPORT INFORMATION
  Report Type: 
  Country: None (occurrence: None)
  Receive Date: 20061026
  Receipt Date: 20061026
  Transmission Date: 20070319
  Serious: Yes (Other)
  Sender: FDA-Public Use
  Company Number: None

PATIENT
  Sex: Female
  Weight: 61.2356 kg

DRUGS (2)
  1. EFFEXOR XR [Suspect]
     Indication: ANXIETY
     Dosage: 1 PILL   EVERYDAY    PO
     Route: 048
     Dates: start: 20020601, end: 20061031
  2. EFFEXOR XR [Suspect]
     Indication: DEPRESSION
     Dosage: 1 PILL   EVERYDAY    PO
     Route: 048
     Dates: start: 20020601, end: 20061031

REACTIONS (9)
  - ABNORMAL DREAMS [None]
  - AFFECT LABILITY [None]
  - DRUG DEPENDENCE [None]
  - DRUG WITHDRAWAL SYNDROME [None]
  - HEART RATE INCREASED [None]
  - SLEEP TERROR [None]
  - SUICIDAL IDEATION [None]
  - TENSION [None]
  - TREMOR [None]
